FAERS Safety Report 4703442-X (Version None)
Quarter: 2005Q2

REPORT INFORMATION
  Report Type: 
  Country: None (occurrence: None)
  Receive Date: 20050629
  Receipt Date: 20050613
  Transmission Date: 20051028
  Serious: Yes (Hospitalization, Other)
  Sender: FDA-Public Use
  Company Number: USA0506100427

PATIENT
  Age: 57 Year
  Sex: Female

DRUGS (1)
  1. FORTEO [Suspect]
     Indication: OSTEOPOROSIS
     Dates: start: 20050331

REACTIONS (5)
  - CELLULITIS [None]
  - FAILURE OF IMPLANT [None]
  - OSTEOMYELITIS [None]
  - PAIN [None]
  - SWELLING [None]
